FAERS Safety Report 23046138 (Version 1)
Quarter: 2023Q4

REPORT INFORMATION
  Report Type: Report from Study
  Country: ZA (occurrence: ZA)
  Receive Date: 20231009
  Receipt Date: 20231009
  Transmission Date: 20240110
  Serious: Yes (Death, Other)
  Sender: FDA-Public Use
  Company Number: ZA-MYLANLABS-2023M1106076

PATIENT
  Age: 39 Year
  Sex: Male
  Weight: 62 kg

DRUGS (17)
  1. PRETOMANID [Suspect]
     Active Substance: PRETOMANID
     Indication: Product used for unknown indication
     Dosage: 200 MILLIGRAM, QD
     Route: 048
     Dates: start: 20230901, end: 20230917
  2. MOXIFLOXACIN [Suspect]
     Active Substance: MOXIFLOXACIN
     Indication: Product used for unknown indication
     Dosage: 400 MILLIGRAM, QD
     Route: 048
     Dates: start: 20230901, end: 20230917
  3. BEDAQUILINE [Suspect]
     Active Substance: BEDAQUILINE
     Indication: Product used for unknown indication
     Dosage: 200 MILLIGRAM
     Route: 048
     Dates: start: 20230901, end: 20230917
  4. ACETAMINOPHEN [Concomitant]
     Active Substance: ACETAMINOPHEN
     Indication: Pyrexia
     Dosage: 500 MILLIGRAM
     Route: 048
     Dates: start: 20230803, end: 20230805
  5. ACETAMINOPHEN [Concomitant]
     Active Substance: ACETAMINOPHEN
     Dosage: 500 MILLIGRAM, BID
     Route: 048
     Dates: start: 20230806, end: 20230811
  6. DICLOFENAC [Concomitant]
     Active Substance: DICLOFENAC
     Indication: Pain
     Dosage: 75 MILLIGRAM
     Route: 030
     Dates: start: 20230803, end: 20230803
  7. DICLOFENAC [Concomitant]
     Active Substance: DICLOFENAC
     Dosage: 75 MILLIGRAM
     Route: 030
     Dates: start: 20230825, end: 20231001
  8. ALBENDAZOLE [Concomitant]
     Active Substance: ALBENDAZOLE
     Indication: Prophylaxis
     Dosage: 400 MILLIGRAM
     Route: 065
     Dates: start: 20230803, end: 20230803
  9. ALBENDAZOLE [Concomitant]
     Active Substance: ALBENDAZOLE
     Dosage: 400 MILLIGRAM, QD
     Route: 048
     Dates: start: 20230823, end: 20230826
  10. FERROUS FUMARATE [Concomitant]
     Active Substance: FERROUS FUMARATE
     Indication: Anaemia
     Dosage: 370 MILLIGRAM, QD
     Route: 048
     Dates: start: 20230803, end: 20230819
  11. DEXTROSE [Concomitant]
     Active Substance: DEXTROSE\DEXTROSE MONOHYDRATE
     Indication: Inflammation
     Dosage: 8 MILLIGRAM
     Route: 042
     Dates: start: 20230803, end: 20230803
  12. IBUPROFEN [Concomitant]
     Active Substance: IBUPROFEN
     Indication: Product used for unknown indication
     Dosage: 400 MILLIGRAM, BID
     Route: 048
     Dates: start: 20230824, end: 20230830
  13. IBUPROFEN [Concomitant]
     Active Substance: IBUPROFEN
     Dosage: 400 MILLIGRAM, PRN
     Route: 048
     Dates: start: 20230913, end: 20230916
  14. TINIDAZOLE [Concomitant]
     Active Substance: TINIDAZOLE
     Indication: Product used for unknown indication
     Dosage: 2 GRAM
     Route: 048
     Dates: start: 20230908, end: 20230908
  15. TINIDAZOLE [Concomitant]
     Active Substance: TINIDAZOLE
     Dosage: 2 GRAM
     Route: 048
     Dates: start: 20230915, end: 20230915
  16. ARTEFAN [Concomitant]
     Indication: Product used for unknown indication
     Dosage: 560 MILLIGRAM, BID
     Route: 048
     Dates: start: 20230905, end: 20230908
  17. OMEPRAZOLE [Concomitant]
     Active Substance: OMEPRAZOLE
     Indication: Product used for unknown indication
     Dosage: 20 MILLIGRAM, QD
     Route: 048
     Dates: start: 20230907, end: 20230912

REACTIONS (2)
  - Acute respiratory distress syndrome [Fatal]
  - Electrocardiogram QT prolonged [Not Recovered/Not Resolved]

NARRATIVE: CASE EVENT DATE: 20230911
